FAERS Safety Report 6732896-2 (Version None)
Quarter: 2010Q2

REPORT INFORMATION
  Report Type: 
  Country: None (occurrence: None)
  Receive Date: 20100517
  Receipt Date: 20100504
  Transmission Date: 20101027
  Serious: Yes (Hospitalization)
  Sender: FDA-Public Use
  Company Number: 2009SP038212

PATIENT
  Age: 37 Year
  Sex: Female
  Weight: 85.7298 kg

DRUGS (14)
  1. NUVARING [Suspect]
     Indication: MENSTRUATION IRREGULAR
     Dosage: 1 DF; QM; VAG
     Dates: start: 20020101, end: 20060601
  2. NUVARING [Suspect]
     Indication: UTERINE LEIOMYOMA
     Dosage: 1 DF; QM; VAG
     Dates: start: 20020101, end: 20060601
  3. THYROID TAB [Concomitant]
  4. MULTI-VITAMINS [Concomitant]
  5. PLAVIX [Concomitant]
  6. SYNTHROID [Concomitant]
  7. LEXAPRO [Concomitant]
  8. XANAX [Concomitant]
  9. TAMIFLU [Concomitant]
  10. DARVOCET-N 100 [Concomitant]
  11. PROZAC [Concomitant]
  12. IBUPROFEN [Concomitant]
  13. LEVOXYL [Concomitant]
  14. CALCIUM + D [Concomitant]

REACTIONS (14)
  - BLOOD UREA DECREASED [None]
  - CEREBROVASCULAR ACCIDENT [None]
  - DIZZINESS POSTURAL [None]
  - DYSPNOEA [None]
  - EAR PAIN [None]
  - FALL [None]
  - FOOD POISONING [None]
  - GASTROENTERITIS [None]
  - HEADACHE [None]
  - HYPOKALAEMIA [None]
  - NERVOUS SYSTEM DISORDER [None]
  - PRESYNCOPE [None]
  - TINNITUS [None]
  - VESTIBULAR DISORDER [None]
